FAERS Safety Report 8905311 (Version 1)
Quarter: 2012Q4

REPORT INFORMATION
  Report Type: 
  Country: US (occurrence: US)
  Receive Date: 20121113
  Receipt Date: 20121113
  Transmission Date: 20130627
  Serious: Yes (Hospitalization, Other)
  Sender: FDA-Public Use
  Company Number: US-SANOFI-AVENTIS-2012SA081625

PATIENT
  Age: 70 Year
  Sex: Male

DRUGS (2)
  1. LANTUS [Suspect]
     Dosage: Dose:30 unit(s)
     Route: 058
  2. NOVOLOG [Suspect]

REACTIONS (3)
  - Laryngeal cancer [Unknown]
  - Tongue neoplasm malignant stage unspecified [Unknown]
  - Cardiac disorder [Unknown]
